FAERS Safety Report 7248612-4 (Version None)
Quarter: 2011Q1

REPORT INFORMATION
  Report Type: 
  Country: None (occurrence: None)
  Receive Date: 20110128
  Receipt Date: 20110112
  Transmission Date: 20110831
  Serious: Yes (Hospitalization, Disabling, Other)
  Sender: FDA-Public Use
  Company Number: US-BAYER-2011-004330

PATIENT
  Sex: Female

DRUGS (13)
  1. COUMADIN [Concomitant]
  2. FLAX SEED OIL [Concomitant]
  3. CALCIUM [CALCIUM] [Concomitant]
  4. LISINOPRIL [Concomitant]
  5. ALEVE (CAPLET) [Suspect]
     Indication: GOUT
     Dosage: 220 MG, QD
     Route: 048
     Dates: start: 20101006, end: 20101006
  6. SOTALOL [Concomitant]
  7. XOPENEX [Concomitant]
  8. FORADIL [Concomitant]
  9. LASIX [Concomitant]
  10. ALEVE (CAPLET) [Suspect]
     Dosage: 220 MG, BID
     Route: 048
     Dates: start: 20101007, end: 20101008
  11. VITAMIN D [Concomitant]
  12. UNCODEABLE ^UNCLASSIFIABLE^ [Concomitant]
  13. CENTRUM SILVER [Concomitant]

REACTIONS (11)
  - PAIN [None]
  - DEHYDRATION [None]
  - ABASIA [None]
  - SKIN ULCER [None]
  - VOMITING [None]
  - DISCOMFORT [None]
  - SKIN NECROSIS [None]
  - RASH PAPULAR [None]
  - BLISTER [None]
  - GASTRIC DISORDER [None]
  - BLOOD PRESSURE INCREASED [None]
